FAERS Safety Report 10234327 (Version 1)
Quarter: 2014Q2

REPORT INFORMATION
  Report Type: Spontaneous
  Country: US (occurrence: US)
  Receive Date: 20140612
  Receipt Date: 20140612
  Transmission Date: 20141212
  Serious: Yes (Other)
  Sender: FDA-Public Use
  Company Number: US-GILEAD-2014-0104726

PATIENT
  Sex: Female

DRUGS (2)
  1. RANEXA [Suspect]
     Indication: PRODUCT USED FOR UNKNOWN INDICATION
     Dosage: 1000 MG, BID
     Route: 065
     Dates: start: 201404
  2. RANEXA [Suspect]
     Dosage: 500 MG, BID
     Dates: start: 201401

REACTIONS (2)
  - Angina pectoris [Unknown]
  - Chromaturia [Unknown]
